FAERS Safety Report 7717499-5 (Version None)
Quarter: 2011Q3

REPORT INFORMATION
  Report Type: 
  Country: None (occurrence: None)
  Receive Date: 20110830
  Receipt Date: 20110822
  Transmission Date: 20111222
  Serious: Yes (Other)
  Sender: FDA-Public Use
  Company Number: US-BAYER-2011-026490

PATIENT
  Sex: Female

DRUGS (3)
  1. SODIUM PHOSPHATES [Concomitant]
  2. MAGNESIUM CITRATE [Concomitant]
  3. MIRENA [Suspect]
     Indication: CONTRACEPTION
     Dosage: 20 ?G, CONT
     Route: 015
     Dates: start: 20080401, end: 20101201

REACTIONS (17)
  - DEVICE DISLOCATION [None]
  - VISION BLURRED [None]
  - ABDOMINAL DISTENSION [None]
  - ALOPECIA [None]
  - POLYMENORRHOEA [None]
  - FEELING HOT [None]
  - DIZZINESS [None]
  - POST PROCEDURAL HAEMORRHAGE [None]
  - FATIGUE [None]
  - PROCEDURAL PAIN [None]
  - DEPRESSION [None]
  - NAUSEA [None]
  - WEIGHT LOSS POOR [None]
  - ABDOMINAL PAIN [None]
  - HYPERHIDROSIS [None]
  - MOOD ALTERED [None]
  - ABORTION SPONTANEOUS [None]
